FAERS Safety Report 5962035-7 (Version None)
Quarter: 2008Q4

REPORT INFORMATION
  Report Type: 
  Country: None (occurrence: None)
  Receive Date: 20081121
  Receipt Date: 20081118
  Transmission Date: 20090506
  Serious: Yes (Other)
  Sender: FDA-Public Use
  Company Number: CA-WYE-H06911408

PATIENT
  Sex: Male

DRUGS (1)
  1. ADVIL [Suspect]
     Indication: HEADACHE
     Dosage: UNKNOWN
     Route: 048
     Dates: start: 20081101, end: 20081101

REACTIONS (3)
  - MALAISE [None]
  - RASH [None]
  - SKIN DISCOLOURATION [None]
